FAERS Safety Report 19106669 (Version 1)
Quarter: 2021Q2

REPORT INFORMATION
  Report Type: Spontaneous
  Country: US (occurrence: US)
  Receive Date: 20210407
  Receipt Date: 20210407
  Transmission Date: 20210717
  Serious: Yes (Hospitalization)
  Sender: FDA-Public Use
  Company Number: None

PATIENT
  Age: 84 Year
  Sex: Male

DRUGS (4)
  1. DEFERASIROX. [Suspect]
     Active Substance: DEFERASIROX
     Indication: TOXICITY TO VARIOUS AGENTS
     Route: 048
     Dates: start: 20190511
  2. RENAL CAP; TYLENOL; VIT D3 [Concomitant]
  3. ALLOPURINOL; ASPIRIN; COLESEVELAM; EXJADE; JANUVIA; LEVOFLOXACIN; [Concomitant]
  4. LEVOTHYROXIN; LIPITOR; LOPRESSOR; PLAVIX; PREDNISONE; PRESERVISION; [Concomitant]

REACTIONS (1)
  - Gangrene [None]

NARRATIVE: CASE EVENT DATE: 20210325
